FAERS Safety Report 14714154 (Version 1)
Quarter: 2018Q2

REPORT INFORMATION
  Report Type: Report from Study
  Country: None (occurrence: DE)
  Receive Date: 20180404
  Receipt Date: 20180404
  Transmission Date: 20180711
  Serious: Yes (Death)
  Sender: FDA-Public Use
  Company Number: DE-ABBVIE-18K-062-2311403-00

PATIENT
  Sex: Male

DRUGS (1)
  1. DUODOPA [Suspect]
     Active Substance: CARBIDOPA\LEVODOPA
     Indication: PARKINSON^S DISEASE
     Dosage: MD 8 ML  CRD 2,3 ML/H ED 2 ML
     Route: 050
     Dates: start: 20080131, end: 20180330

REACTIONS (1)
  - General physical health deterioration [Fatal]
